FAERS Safety Report 13330836 (Version 3)
Quarter: 2017Q2

REPORT INFORMATION
  Report Type: Spontaneous
  Country: US (occurrence: US)
  Receive Date: 20170314
  Receipt Date: 20170529
  Transmission Date: 20170830
  Serious: Yes (Other)
  Sender: FDA-Public Use
  Company Number: US-TEVA-747875ACC

PATIENT
  Sex: Female
  Weight: 72.64 kg

DRUGS (1)
  1. PARAGARD T 380A [Suspect]
     Active Substance: COPPER
     Indication: CONTRACEPTION
     Dates: start: 20140724, end: 20170306

REACTIONS (3)
  - Abortion spontaneous [Unknown]
  - Pregnancy on contraceptive [Unknown]
  - Exposure during pregnancy [Unknown]
